FAERS Safety Report 7932004 (Version 6)
Quarter: 2012Q4

REPORT INFORMATION
  Report Type: 
  Country: BR (occurrence: BR)
  Receive Date: 20110505
  Receipt Date: 20121226
  Transmission Date: 20130627
  Serious: Yes (Hospitalization, Other)
  Sender: FDA-Public Use
  Company Number: BR-PFIZER INC-2011026653

PATIENT
  Age: 18 Year
  Sex: Female
  Weight: 50 kg

DRUGS (4)
  1. DEPO-PROVERA [Suspect]
     Indication: CONTRACEPTION
     Dosage: 150 mg, every 3 months
     Route: 030
     Dates: start: 2003
  2. DEPO-PROVERA [Suspect]
     Indication: MENSTRUAL CYCLE MANAGEMENT
     Dosage: UNK
     Dates: start: 2004, end: 2012
  3. DEPO-PROVERA [Suspect]
     Indication: PRE-MENSTRUAL TENSION SYNDROME
     Dosage: UNK
     Dates: start: 20121103
  4. BUSCOPAN [Concomitant]

REACTIONS (23)
  - Urinary tract infection [Not Recovered/Not Resolved]
  - Vomiting [Not Recovered/Not Resolved]
  - Headache [Not Recovered/Not Resolved]
  - Pelvic pain [Not Recovered/Not Resolved]
  - Condition aggravated [Not Recovered/Not Resolved]
  - Drug ineffective [Unknown]
  - Unintended pregnancy [Unknown]
  - Weight increased [Unknown]
  - Feeling abnormal [Unknown]
  - Amenorrhoea [Recovered/Resolved]
  - Breast enlargement [Not Recovered/Not Resolved]
  - Breast swelling [Not Recovered/Not Resolved]
  - Malaise [Not Recovered/Not Resolved]
  - Metrorrhagia [Not Recovered/Not Resolved]
  - Nausea [Not Recovered/Not Resolved]
  - Swelling [Not Recovered/Not Resolved]
  - Abdominal pain upper [Not Recovered/Not Resolved]
  - Dizziness [Not Recovered/Not Resolved]
  - Retching [Unknown]
  - Breast pain [Unknown]
  - Inappropriate schedule of drug administration [Unknown]
  - Blood pressure decreased [Unknown]
  - Menstrual disorder [Not Recovered/Not Resolved]
